FAERS Safety Report 8117063-2 (Version None)
Quarter: 2012Q1

REPORT INFORMATION
  Report Type: 
  Country: None (occurrence: None)
  Receive Date: 20120206
  Receipt Date: 20120201
  Transmission Date: 20120608
  Serious: Yes (Life-Threatening, Hospitalization, Other)
  Sender: FDA-Public Use
  Company Number: US-ASTRAZENECA-2010SE59384

PATIENT
  Age: 47 Year
  Sex: Female
  Weight: 111.1 kg

DRUGS (9)
  1. NEXIUM [Suspect]
     Route: 048
  2. FOSAMAX [Concomitant]
     Indication: BONE LOSS
     Route: 048
     Dates: start: 20080101
  3. PULMICORT [Suspect]
     Route: 055
  4. SYMBICORT [Suspect]
     Indication: CHRONIC OBSTRUCTIVE PULMONARY DISEASE
     Dosage: 160/4.5 MCG TWO PUFFS TWO TIMES A DAY
     Route: 055
     Dates: start: 20081001
  5. SYMBICORT [Suspect]
     Indication: ASTHMA
     Dosage: 160/4.5 MCG TWO PUFFS TWO TIMES A DAY
     Route: 055
     Dates: start: 20081001
  6. COUMADIN [Concomitant]
     Indication: THROMBOSIS
     Route: 048
     Dates: start: 20100628
  7. PREVACID [Concomitant]
     Indication: GASTROOESOPHAGEAL REFLUX DISEASE
     Route: 048
     Dates: start: 20080101
  8. SIMVASTATIN [Concomitant]
     Indication: BLOOD CHOLESTEROL ABNORMAL
     Route: 048
     Dates: start: 20080101
  9. XOPONEX [Concomitant]
     Indication: ASTHMA
     Dosage: AS NEEDED
     Route: 055
     Dates: start: 20080101

REACTIONS (6)
  - THROMBOSIS [None]
  - MALAISE [None]
  - RESPIRATORY FAILURE [None]
  - ASTHMA [None]
  - CANDIDIASIS [None]
  - FUNGAL INFECTION [None]
